FAERS Safety Report 15834983 (Version 2)
Quarter: 2019Q2

REPORT INFORMATION
  Report Type: Spontaneous
  Country: US (occurrence: US)
  Receive Date: 20190116
  Receipt Date: 20190416
  Transmission Date: 20190711
  Serious: No
  Sender: FDA-Public Use
  Company Number: US-CHILTERN-US-2018-000226

PATIENT
  Sex: Female

DRUGS (9)
  1. TIMOLOL MALEATE. [Concomitant]
     Active Substance: TIMOLOL MALEATE
     Dosage: UNK UNK, BID
     Route: 047
     Dates: start: 20150325
  2. LISINOPRIL HCTZ [Concomitant]
     Active Substance: HYDROCHLOROTHIAZIDE\LISINOPRIL
  3. METFORMIN [Concomitant]
     Active Substance: METFORMIN HYDROCHLORIDE
     Route: 047
  4. RHOPRESSA [Suspect]
     Active Substance: NETARSUDIL MESYLATE
     Dosage: UNK, UNK
     Route: 047
  5. LATANOPROST. [Concomitant]
     Active Substance: LATANOPROST
     Dosage: UNK, QD
     Route: 047
     Dates: start: 20150325
  6. ATORVASTIN [Concomitant]
     Active Substance: ATORVASTATIN
     Route: 047
  7. BRIMONIDINE [Concomitant]
     Active Substance: BRIMONIDINE TARTRATE
     Dosage: UNK UNK, TID
     Route: 047
     Dates: start: 20150325
  8. RANITIDINE. [Concomitant]
     Active Substance: RANITIDINE
  9. GLIPIZIDE. [Concomitant]
     Active Substance: GLIPIZIDE
     Route: 047

REACTIONS (2)
  - Blood urine present [Recovered/Resolved]
  - Ear pain [Recovered/Resolved]
